FAERS Safety Report 12855263 (Version 3)
Quarter: 2016Q4

REPORT INFORMATION
  Report Type: Report from Study
  Country: BR (occurrence: BR)
  Receive Date: 20161017
  Receipt Date: 20161111
  Transmission Date: 20170207
  Serious: Yes (Disabling, Other)
  Sender: FDA-Public Use
  Company Number: PHHY2016BR036403

PATIENT
  Age: 82 Year
  Sex: Female
  Weight: 65 kg

DRUGS (1)
  1. ACLASTA [Suspect]
     Active Substance: ZOLEDRONIC ACID
     Indication: OSTEOPOROSIS
     Dosage: 5 MG, Q12MO
     Route: 042
     Dates: start: 2013

REACTIONS (14)
  - Concomitant disease aggravated [Not Recovered/Not Resolved]
  - Nasopharyngitis [Unknown]
  - Pain in extremity [Not Recovered/Not Resolved]
  - Brain compression [Unknown]
  - Catarrh [Unknown]
  - Hypoacusis [Unknown]
  - Muscular weakness [Unknown]
  - Spinal pain [Not Recovered/Not Resolved]
  - Malaise [Unknown]
  - Spinal disorder [Unknown]
  - Groin pain [Not Recovered/Not Resolved]
  - Nasopharyngitis [Recovered/Resolved]
  - Aphonia [Unknown]
  - Ear disorder [Not Recovered/Not Resolved]

NARRATIVE: CASE EVENT DATE: 20160311
